FAERS Safety Report 18529256 (Version 2)
Quarter: 2021Q1

REPORT INFORMATION
  Report Type: Spontaneous
  Country: US (occurrence: US)
  Receive Date: 20201120
  Receipt Date: 20210105
  Transmission Date: 20210419
  Serious: No
  Sender: FDA-Public Use
  Company Number: US-PFIZER INC-2019250006

PATIENT
  Age: 72 Year
  Sex: Male
  Weight: 79.83 kg

DRUGS (4)
  1. LYRICA [Suspect]
     Active Substance: PREGABALIN
     Indication: NEURALGIA
     Dosage: 300 MG, 1X/DAY(90 CAPSULE)
     Route: 048
  2. LYRICA [Suspect]
     Active Substance: PREGABALIN
     Indication: PERIPHERAL ARTERY ANEURYSM
  3. LYRICA [Suspect]
     Active Substance: PREGABALIN
     Indication: AMPUTATION
  4. LYRICA [Suspect]
     Active Substance: PREGABALIN
     Indication: NEURITIS
     Dosage: 300 MG, 2X/DAY
     Route: 048
     Dates: end: 20201101

REACTIONS (2)
  - Body height decreased [Unknown]
  - Pain in extremity [Unknown]
